FAERS Safety Report 10494580 (Version 3)
Quarter: 2014Q4

REPORT INFORMATION
  Report Type: Spontaneous
  Country: FR (occurrence: FR)
  Receive Date: 20141003
  Receipt Date: 20141016
  Transmission Date: 20150528
  Serious: Yes (Hospitalization, Other)
  Sender: FDA-Public Use
  Company Number: FR-JNJFOC-20040605108

PATIENT
  Age: 16 Year
  Sex: Female

DRUGS (2)
  1. PARACETAMOL [Suspect]
     Active Substance: ACETAMINOPHEN
     Indication: PRODUCT USED FOR UNKNOWN INDICATION
     Route: 048
  2. PARACETAMOL [Suspect]
     Active Substance: ACETAMINOPHEN
     Route: 048

REACTIONS (11)
  - Hepatocellular injury [Recovered/Resolved]
  - Leukocytosis [Unknown]
  - Blood phosphorus decreased [Unknown]
  - Thrombocytopenia [Unknown]
  - Aspartate aminotransferase increased [Recovered/Resolved]
  - Abnormal clotting factor [Unknown]
  - Overdose [Recovered/Resolved]
  - Gastrointestinal disorder [Unknown]
  - Prothrombin time prolonged [Recovered/Resolved]
  - Bronchitis [Recovered/Resolved]
  - Alanine aminotransferase increased [Recovered/Resolved]
